FAERS Safety Report 15679626 (Version 2)
Quarter: 2018Q4

REPORT INFORMATION
  Report Type: Spontaneous
  Country: FR (occurrence: FR)
  Receive Date: 20181203
  Receipt Date: 20181226
  Transmission Date: 20190205
  Serious: Yes (Hospitalization)
  Sender: FDA-Public Use
  Company Number: FR-ACCORD-094713

PATIENT
  Age: 79 Year
  Sex: Female
  Weight: 97 kg

DRUGS (10)
  1. AMLOR [Concomitant]
     Active Substance: AMLODIPINE BESYLATE
     Route: 048
  2. FORLAX [Concomitant]
     Active Substance: POLYETHYLENE GLYCOL 4000
  3. FOLINIC ACID [Concomitant]
     Active Substance: LEUCOVORIN
     Dates: start: 20170719, end: 20170719
  4. PANTOPRAZOLE [Concomitant]
     Active Substance: PANTOPRAZOLE
     Dosage: 40 MG, QD
  5. FLUOROURACIL. [Suspect]
     Active Substance: FLUOROURACIL
     Indication: ADENOCARCINOMA OF COLON
     Route: 042
     Dates: start: 20170719, end: 20170720
  6. DEXERYL [Concomitant]
  7. OXALIPLATIN. [Concomitant]
     Active Substance: OXALIPLATIN
     Indication: ADENOCARCINOMA OF COLON
  8. IRINOTECAN [Suspect]
     Active Substance: IRINOTECAN
     Indication: ADENOCARCINOMA OF COLON
     Route: 042
     Dates: start: 20170719, end: 20170719
  9. VECTIBIX [Suspect]
     Active Substance: PANITUMUMAB
     Indication: ADENOCARCINOMA OF COLON
     Dosage: 20 MG/ML,ALSO RECEIVED 20 DOSAGE FORM
     Route: 042
     Dates: start: 20170719, end: 20170719
  10. OLANZAPINE. [Concomitant]
     Active Substance: OLANZAPINE
     Dosage: 7.5 MG, QD

REACTIONS (1)
  - Febrile neutropenia [Recovered/Resolved]

NARRATIVE: CASE EVENT DATE: 20170730
